FAERS Safety Report 13579026 (Version 1)
Quarter: 2017Q2

REPORT INFORMATION
  Report Type: Spontaneous
  Country: US (occurrence: US)
  Receive Date: 20170524
  Receipt Date: 20170524
  Transmission Date: 20170830
  Serious: No
  Sender: FDA-Public Use
  Company Number: None

PATIENT
  Age: 60 Year
  Sex: Female

DRUGS (1)
  1. FORTEO [Suspect]
     Active Substance: TERIPARATIDE
     Indication: OSTEOPOROSIS
     Route: 058
     Dates: start: 201611

REACTIONS (10)
  - Procedural vomiting [None]
  - Malaise [None]
  - Corneal operation [None]
  - Dehydration [None]
  - Laceration [None]
  - Post procedural complication [None]
  - Loss of consciousness [None]
  - Head injury [None]
  - Dizziness [None]
  - Fall [None]

NARRATIVE: CASE EVENT DATE: 20170512
